FAERS Safety Report 11464367 (Version 2)
Quarter: 2015Q3

REPORT INFORMATION
  Report Type: Spontaneous
  Country: US (occurrence: US)
  Receive Date: 20150831
  Receipt Date: 20150903
  Transmission Date: 20151125
  Serious: No
  Sender: FDA-Public Use
  Company Number: US-ELI_LILLY_AND_COMPANY-US201107003527

PATIENT
  Sex: Female

DRUGS (2)
  1. CYMBALTA [Suspect]
     Active Substance: DULOXETINE HYDROCHLORIDE
     Indication: DEPRESSION
     Dosage: 30 MG, QD
  2. CYMBALTA [Suspect]
     Active Substance: DULOXETINE HYDROCHLORIDE
     Dosage: 30 MG, QD

REACTIONS (13)
  - Anxiety [Recovering/Resolving]
  - Drug dose omission [Recovered/Resolved]
  - Drug effect decreased [Recovered/Resolved]
  - Decreased appetite [Recovering/Resolving]
  - Personality change [Recovering/Resolving]
  - Panic attack [Recovering/Resolving]
  - Vision blurred [Recovering/Resolving]
  - Vomiting [Recovering/Resolving]
  - Nervousness [Recovering/Resolving]
  - Adverse event [Recovering/Resolving]
  - Dry eye [Recovering/Resolving]
  - Incorrect dose administered [Unknown]
  - Feeling abnormal [Recovering/Resolving]
